FAERS Safety Report 10523077 (Version 1)
Quarter: 2014Q4

REPORT INFORMATION
  Report Type: Spontaneous
  Country: PL (occurrence: PL)
  Receive Date: 20141016
  Receipt Date: 20141016
  Transmission Date: 20150528
  Serious: Yes (Death)
  Sender: FDA-Public Use
  Company Number: PL-PFIZER INC-2014281124

PATIENT
  Age: 26 Year
  Sex: Female

DRUGS (9)
  1. CLINDAMYCIN PHOSPHATE. [Suspect]
     Active Substance: CLINDAMYCIN PHOSPHATE
  2. CEFOTAXIME [Suspect]
     Active Substance: CEFOTAXIME\CEFOTAXIME SODIUM
  3. METRONIDAZOLE. [Suspect]
     Active Substance: METRONIDAZOLE
  4. DEXAMETHASONE. [Suspect]
     Active Substance: DEXAMETHASONE
  5. NOREPINEPHRINE [Suspect]
     Active Substance: NOREPINEPHRINE\NOREPINEPHRINE BITARTRATE
  6. LINEZOLID. [Suspect]
     Active Substance: LINEZOLID
  7. AMOXICILIN + ACID CLAVULANIC [Suspect]
     Active Substance: AMOXICILLIN\CLAVULANIC ACID
  8. AMICACINA ^EUROFARMA^ [Suspect]
     Active Substance: AMIKACIN
  9. MEROPENEM. [Suspect]
     Active Substance: MEROPENEM

REACTIONS (1)
  - Drug ineffective [Fatal]
